FAERS Safety Report 8991114 (Version 1)
Quarter: 2012Q4

REPORT INFORMATION
  Report Type: 
  Country: US (occurrence: US)
  Receive Date: 20121231
  Receipt Date: 20121231
  Transmission Date: 20130627
  Serious: Yes (Other)
  Sender: FDA-Public Use
  Company Number: US-BAYER-2012-136287

PATIENT
  Age: 51 Year
  Sex: Female

DRUGS (2)
  1. GIANVI [Suspect]
  2. YAZ [Suspect]

REACTIONS (1)
  - Thrombophlebitis superficial [Recovered/Resolved]
